FAERS Safety Report 8566756 (Version 2)
Quarter: 2013Q3

REPORT INFORMATION
  Report Type: Spontaneous
  Country: BE (occurrence: None)
  Receive Date: 20120503
  Receipt Date: 20130705
  Transmission Date: 20140515
  Serious: Yes (Hospitalization)
  Sender: FDA-Public Use
  Company Number: BE-021482

PATIENT
  Age: 53 Year
  Sex: Female
  Weight: 24.86 kg

DRUGS (2)
  1. CHLORAMBUCIL [Suspect]
     Indication: CHRONIC LYMPHOCYTIC LEUKAEMIA
     Route: 048
     Dates: start: 20090325
  2. OFATUMUMAB [Suspect]
     Indication: PRODUCT USED FOR UNKNOWN INDICATION
     Route: 042

REACTIONS (4)
  - Septic shock [None]
  - Pneumonia [None]
  - Asthenia [None]
  - Giardiasis [None]
